FAERS Safety Report 9276963 (Version 1)
Quarter: 2013Q2

REPORT INFORMATION
  Report Type: Spontaneous
  Country: BR (occurrence: BR)
  Receive Date: 20130507
  Receipt Date: 20130507
  Transmission Date: 20140414
  Serious: Yes (Other)
  Sender: FDA-Public Use
  Company Number: BR-PFIZER INC-2013140928

PATIENT
  Age: 60 Year
  Sex: Female

DRUGS (5)
  1. LYRICA [Suspect]
     Indication: PAIN
     Dosage: 75 MG (ONE CAPSULE), 1X/DAY
     Route: 048
     Dates: start: 20111020, end: 2011
  2. LYRICA [Suspect]
     Indication: LUMBAR HERNIA
  3. SOY ISOFLAVONES [Concomitant]
     Indication: HORMONE REPLACEMENT THERAPY
     Dosage: 1 DF, 1X/DAY
     Dates: start: 2007
  4. MODURETIC [Concomitant]
     Indication: DIURETIC THERAPY
     Dosage: 1 DF, 1X/DAY
     Dates: start: 2005, end: 2011
  5. MODURETIC [Concomitant]
     Indication: HYPERTENSION

REACTIONS (2)
  - Hypercholesterolaemia [Unknown]
  - Weight increased [Unknown]
